FAERS Safety Report 8051940-6 (Version None)
Quarter: 2012Q1

REPORT INFORMATION
  Report Type: 
  Country: None (occurrence: None)
  Receive Date: 20120118
  Receipt Date: 20120112
  Transmission Date: 20120608
  Serious: Yes (Death, Other)
  Sender: FDA-Public Use
  Company Number: JP-JNJFOC-20100704765

PATIENT
  Sex: Female
  Weight: 50 kg

DRUGS (16)
  1. RAMELTEON [Concomitant]
     Indication: PROPHYLAXIS
     Route: 048
     Dates: end: 20100309
  2. ZOLPIDEM [Concomitant]
     Indication: INSOMNIA
     Route: 048
  3. ALLEGRA [Concomitant]
     Indication: CONJUNCTIVITIS ALLERGIC
     Route: 048
  4. MOHRUS TAPE [Concomitant]
     Indication: BACK PAIN
     Route: 003
  5. EURAX [Concomitant]
     Indication: PALMAR-PLANTAR ERYTHRODYSAESTHESIA SYNDROME
     Route: 061
     Dates: start: 20100111
  6. DOXORUBICIN HCL [Suspect]
     Dosage: CYCLE 3
     Route: 042
     Dates: start: 20100304, end: 20100304
  7. ALFAROL [Concomitant]
     Indication: HYPERTENSION
     Route: 048
  8. MAGNESIUM SULFATE [Concomitant]
     Indication: CONSTIPATION
     Route: 048
  9. SODIUM BICARBONATE [Concomitant]
     Indication: PROPHYLAXIS
     Route: 002
     Dates: end: 20100414
  10. RIKKUNSHI-TO [Concomitant]
     Indication: DECREASED APPETITE
     Route: 048
     Dates: start: 20100112, end: 20100118
  11. FAMOTIDINE [Concomitant]
     Indication: GASTRITIS
     Route: 048
  12. DOXORUBICIN HCL [Suspect]
     Indication: UTERINE CANCER
     Dosage: CYCLE 1
     Route: 042
     Dates: start: 20100107, end: 20100107
  13. BERIZYM [Concomitant]
     Indication: GASTRITIS
     Route: 048
  14. PYDOXAL [Concomitant]
     Indication: PROPHYLAXIS
     Route: 048
     Dates: end: 20100414
  15. DOXORUBICIN HCL [Suspect]
     Dosage: CYCLE 2
     Route: 042
     Dates: start: 20100204, end: 20100204
  16. LOSARTAN POTASSIUM [Concomitant]
     Indication: HYPERTENSION
     Route: 048

REACTIONS (3)
  - NEUTROPHIL COUNT DECREASED [None]
  - OVARIAN CANCER RECURRENT [None]
  - OFF LABEL USE [None]
